FAERS Safety Report 5355916-9 (Version None)
Quarter: 2007Q2

REPORT INFORMATION
  Report Type: 
  Country: None (occurrence: None)
  Receive Date: 20070613
  Receipt Date: 20070601
  Transmission Date: 20071010
  Serious: Yes (Hospitalization)
  Sender: FDA-Public Use
  Company Number: US-KINGPHARMUSA00001-K200700674

PATIENT

DRUGS (10)
  1. ALTACE [Suspect]
     Indication: PROPHYLAXIS
     Dosage: 10 MG, QD
     Route: 048
     Dates: start: 20070425, end: 20070521
  2. ALLOPURINOL [Suspect]
     Indication: GOUT
     Dosage: 2 U, QD
     Route: 048
     Dates: start: 20070425
  3. ASPIRIN [Concomitant]
     Indication: ANTIPLATELET THERAPY
     Dosage: 100 MG, UNK
     Route: 048
     Dates: start: 20070425
  4. ATENOLOL [Concomitant]
     Indication: BLOOD PRESSURE
     Dosage: 500 MG, UNK
     Route: 048
     Dates: start: 20070425
  5. VYTORIN [Concomitant]
     Indication: HYPERCHOLESTEROLAEMIA
     Dosage: 1 TABLET
     Route: 048
     Dates: start: 20070425
  6. FUROSEMIDE [Concomitant]
     Indication: BLOOD PRESSURE
     Dosage: .5 MG, UNK
     Route: 048
     Dates: start: 20070425
  7. LOXOPROFEN [Concomitant]
     Indication: ARTHRALGIA
  8. ZYLORIC                            /00003301/ [Concomitant]
     Indication: ARTHRALGIA
  9. CIMETIDINE HCL [Concomitant]
     Indication: ARTHRALGIA
  10. VALSARTAN [Concomitant]

REACTIONS (6)
  - ALANINE AMINOTRANSFERASE INCREASED [None]
  - ASPARTATE AMINOTRANSFERASE INCREASED [None]
  - BLOOD ALKALINE PHOSPHATASE INCREASED [None]
  - FACE OEDEMA [None]
  - MOUTH ULCERATION [None]
  - RASH [None]
